FAERS Safety Report 20507583 (Version 1)
Quarter: 2022Q1

REPORT INFORMATION
  Report Type: Spontaneous
  Country: US (occurrence: US)
  Receive Date: 20220223
  Receipt Date: 20220223
  Transmission Date: 20220424
  Serious: No
  Sender: FDA-Public Use
  Company Number: US-PFIZER INC-2019429316

PATIENT
  Age: 76 Year
  Sex: Male

DRUGS (2)
  1. VFEND [Suspect]
     Active Substance: VORICONAZOLE
     Indication: Aspergilloma
     Dosage: 200 MG, 2X/DAY
     Route: 048
  2. VFEND [Suspect]
     Active Substance: VORICONAZOLE
     Indication: Aspergillus infection
     Dosage: 50 MG, 2X/DAY(60 DAY SUPPLY, PO BIID, QTY 120 )
     Route: 048

REACTIONS (2)
  - Drug ineffective [Unknown]
  - Product dispensing error [Unknown]
